FAERS Safety Report 23342486 (Version 1)
Quarter: 2023Q4

REPORT INFORMATION
  Report Type: Report from Study
  Country: US (occurrence: None)
  Receive Date: 20231227
  Receipt Date: 20231227
  Transmission Date: 20240109
  Serious: Yes (Death)
  Sender: FDA-Public Use
  Company Number: 2023A292808

PATIENT
  Sex: Male
  Weight: 84.4 kg

DRUGS (28)
  1. CALQUENCE [Suspect]
     Active Substance: ACALABRUTINIB
     Indication: Mantle cell lymphoma
     Route: 048
  2. ACETAMINOPHEN [Concomitant]
     Active Substance: ACETAMINOPHEN
  3. ALLOPURINOL [Concomitant]
     Active Substance: ALLOPURINOL
  4. ASPIRIN [Concomitant]
     Active Substance: ASPIRIN
  5. ATORVASTATIN [Concomitant]
     Active Substance: ATORVASTATIN
  6. BENZONATATE [Concomitant]
     Active Substance: BENZONATATE
  7. BETAMETHASONE [Concomitant]
     Active Substance: BETAMETHASONE\BETAMETHASONE DIPROPIONATE
  8. CALCIUM [Concomitant]
     Active Substance: CALCIUM
  9. VITAMIN B12 [Concomitant]
     Active Substance: CYANOCOBALAMIN
  10. DOXYCYCLINE [Concomitant]
     Active Substance: DOXYCYCLINE
  11. FERROUS SULFATE [Concomitant]
     Active Substance: FERROUS SULFATE
  12. TRAZODONE [Concomitant]
     Active Substance: TRAZODONE HYDROCHLORIDE
  13. TRIAMCINOLONE [Concomitant]
     Active Substance: TRIAMCINOLONE
  14. XGEVA [Concomitant]
     Active Substance: DENOSUMAB
  15. ZYTIGA [Concomitant]
     Active Substance: ABIRATERONE ACETATE
  16. PREDNISONE [Concomitant]
     Active Substance: PREDNISONE
  17. PIOGLITAZONE [Concomitant]
     Active Substance: PIOGLITAZONE
  18. OMEPRAZOLE [Concomitant]
     Active Substance: OMEPRAZOLE
  19. MUCINEX [Concomitant]
     Active Substance: GUAIFENESIN
  20. MIRTAZAPINE [Concomitant]
     Active Substance: MIRTAZAPINE
  21. METFORMIN [Concomitant]
     Active Substance: METFORMIN HYDROCHLORIDE
  22. MAGNSIUM [Concomitant]
  23. LOSARTAN [Concomitant]
     Active Substance: LOSARTAN
  24. LEVOFLOXACIN [Concomitant]
     Active Substance: LEVOFLOXACIN
  25. KEYTRUDA [Concomitant]
     Active Substance: PEMBROLIZUMAB
  26. IMBRUVICA [Concomitant]
     Active Substance: IBRUTINIB
  27. GUAIFENESIN [Concomitant]
     Active Substance: GUAIFENESIN
  28. AMOXICILLIN [Concomitant]
     Active Substance: AMOXICILLIN

REACTIONS (1)
  - Death [Fatal]
